FAERS Safety Report 6789742-0 (Version None)
Quarter: 2010Q2

REPORT INFORMATION
  Report Type: 
  Country: None (occurrence: None)
  Receive Date: 20100624
  Receipt Date: 20100616
  Transmission Date: 20101027
  Serious: Yes (Other)
  Sender: FDA-Public Use
  Company Number: JP-JNJFOC-20100605905

PATIENT

DRUGS (2)
  1. RISPERIDONE [Suspect]
     Indication: DRUG USE FOR UNKNOWN INDICATION
     Route: 048
  2. PARKINSON'S MEDICATION [Suspect]
     Indication: PARKINSON'S DISEASE
     Route: 065

REACTIONS (1)
  - VOCAL CORD PARALYSIS [None]
